FAERS Safety Report 4915077-4 (Version None)
Quarter: 2006Q1

REPORT INFORMATION
  Report Type: 
  Country: None (occurrence: None)
  Receive Date: 20060215
  Receipt Date: 20060215
  Transmission Date: 20060701
  Serious: Yes (Life-Threatening)
  Sender: FDA-Public Use
  Company Number: None

PATIENT
  Sex: Female
  Weight: 62.2 kg

DRUGS (1)
  1. DEMEROL [Suspect]

REACTIONS (3)
  - OEDEMA [None]
  - PRURITUS [None]
  - RASH [None]
